FAERS Safety Report 8126444 (Version 10)
Quarter: 2014Q2

REPORT INFORMATION
  Report Type: Report from Study
  Country: US (occurrence: US)
  Receive Date: 20110908
  Receipt Date: 20140428
  Transmission Date: 20141212
  Serious: Yes (Hospitalization)
  Sender: FDA-Public Use
  Company Number: US-JNJFOC-20110901734

PATIENT
  Age: 15 Year
  Sex: Female
  Weight: 72.3 kg

DRUGS (11)
  1. REMICADE [Suspect]
     Indication: INFLAMMATORY BOWEL DISEASE
     Route: 042
     Dates: start: 200701
  2. WELLBUTRIN [Concomitant]
  3. CELEXA [Concomitant]
  4. CIPROFLOXACIN [Concomitant]
  5. PROBIOTICS [Concomitant]
  6. PRILOSEC [Concomitant]
  7. MIRALAX [Concomitant]
  8. TOPAMAX [Concomitant]
  9. RISPERDAL [Concomitant]
  10. EFFEXOR [Concomitant]
  11. MELATONIN [Concomitant]

REACTIONS (2)
  - Depression [Recovered/Resolved]
  - Bipolar II disorder [Not Recovered/Not Resolved]
